FAERS Safety Report 21250875 (Version 3)
Quarter: 2022Q4

REPORT INFORMATION
  Report Type: Report from Study
  Country: CO (occurrence: CO)
  Receive Date: 20220824
  Receipt Date: 20221017
  Transmission Date: 20230112
  Serious: Yes (Other)
  Sender: FDA-Public Use
  Company Number: CO-SA-SAC20220805000252

PATIENT
  Age: 47 Year
  Sex: Male

DRUGS (8)
  1. DUPILUMAB [Suspect]
     Active Substance: DUPILUMAB
     Indication: Dermatitis atopic
     Dosage: 300 MG, Q15D
     Route: 058
     Dates: start: 20210126, end: 20220608
  2. BARICITINIB [Suspect]
     Active Substance: BARICITINIB
     Dosage: UNK, QD
     Route: 065
  3. DEXAMETHASONE [Concomitant]
     Active Substance: DEXAMETHASONE
     Indication: Dermatitis atopic
     Dosage: UNK UNK, QD
     Route: 061
  4. HYDROCORTISONE [Concomitant]
     Active Substance: HYDROCORTISONE
     Indication: Dermatitis atopic
     Dosage: UNK UNK, QD
     Route: 061
  5. ROXICAN [Concomitant]
     Indication: Dermatitis atopic
     Dosage: UNK UNK, QD
     Route: 061
  6. LIDOCAINE [Concomitant]
     Active Substance: LIDOCAINE
  7. THIAMINE [Concomitant]
     Active Substance: THIAMINE
  8. VITAMINS [Concomitant]
     Active Substance: VITAMINS

REACTIONS (5)
  - Blindness [Not Recovered/Not Resolved]
  - Visual impairment [Not Recovered/Not Resolved]
  - Pruritus [Not Recovered/Not Resolved]
  - Rash [Not Recovered/Not Resolved]
  - Dermatitis atopic [Not Recovered/Not Resolved]

NARRATIVE: CASE EVENT DATE: 20220601
